FAERS Safety Report 6931934-1 (Version None)
Quarter: 2010Q3

REPORT INFORMATION
  Report Type: 
  Country: None (occurrence: None)
  Receive Date: 20100819
  Receipt Date: 20100809
  Transmission Date: 20110219
  Serious: Yes (Other)
  Sender: FDA-Public Use
  Company Number: GB-BAXTER-2010BH021376

PATIENT
  Age: 41 Year

DRUGS (1)
  1. FEIBA [Suspect]
     Indication: FACTOR VIII INHIBITION
     Route: 065

REACTIONS (2)
  - DISSEMINATED INTRAVASCULAR COAGULATION [None]
  - NONSPECIFIC REACTION [None]
